FAERS Safety Report 7564448-9 (Version None)
Quarter: 2011Q2

REPORT INFORMATION
  Report Type: 
  Country: None (occurrence: None)
  Receive Date: 20110622
  Receipt Date: 20110615
  Transmission Date: 20111010
  Serious: Yes (Hospitalization)
  Sender: FDA-Public Use
  Company Number: PHHO2010DE06652

PATIENT
  Sex: Male
  Weight: 59.6 kg

DRUGS (22)
  1. ACETYLCYSTEINE [Concomitant]
     Indication: PROPHYLAXIS
  2. CERTICAN [Suspect]
     Indication: RENAL TRANSPLANT
     Dosage: 3 MG, BID
     Route: 048
     Dates: start: 20100426, end: 20100430
  3. ACETAMINOPHEN [Concomitant]
     Indication: PAIN PROPHYLAXIS
  4. TURIXIN [Concomitant]
     Indication: INFECTION PROPHYLAXIS
  5. PANTOPRAZOLE [Concomitant]
     Indication: GASTRITIS PROPHYLAXIS
  6. PENTAMIDINE ISETHIONATE [Concomitant]
     Indication: INFECTION PROPHYLAXIS
  7. AEB071 [Suspect]
     Dosage: UNK
     Route: 048
     Dates: end: 20100430
  8. SODIUM CHLORIDE [Concomitant]
  9. SODIUM POLYSTYRENE SULFONATE [Concomitant]
     Indication: HYPERKALAEMIA
  10. DIPIDOLOR [Concomitant]
     Indication: PAIN PROPHYLAXIS
  11. ALBUTEROL SULFATE [Concomitant]
     Indication: PROPHYLAXIS
  12. HEPARIN [Concomitant]
     Indication: THROMBOSIS PROPHYLAXIS
  13. SIMULECT [Concomitant]
     Dosage: UNK
     Route: 042
     Dates: start: 20100430, end: 20100430
  14. ZEFFIX [Concomitant]
     Indication: HEPATITIS B
  15. CALCIUM CARBONATE [Concomitant]
  16. KEPINOL [Concomitant]
     Indication: INFECTION PROPHYLAXIS
  17. SIMULECT [Concomitant]
     Indication: RENAL TRANSPLANT
     Dosage: UNK
     Route: 042
     Dates: start: 20100426, end: 20100426
  18. LASIX [Concomitant]
     Indication: PROPHYLAXIS
  19. GELAFUNDIN [Concomitant]
  20. CANDIO-HERMAL [Concomitant]
     Indication: INFECTION PROPHYLAXIS
  21. VALCYTE [Concomitant]
     Indication: INFECTION PROPHYLAXIS
  22. AEB071 [Suspect]
     Indication: RENAL TRANSPLANT
     Dosage: 300 MG, QD
     Route: 048
     Dates: start: 20100426, end: 20100426

REACTIONS (3)
  - POST PROCEDURAL HAEMATOMA [None]
  - HAEMOGLOBIN DECREASED [None]
  - ELECTROCARDIOGRAM QT PROLONGED [None]
